FAERS Safety Report 18083018 (Version 1)
Quarter: 2020Q3

REPORT INFORMATION
  Report Type: Spontaneous
  Country: CH (occurrence: CH)
  Receive Date: 20200729
  Receipt Date: 20200729
  Transmission Date: 20201103
  Serious: Yes (Other)
  Sender: FDA-Public Use
  Company Number: CH-SGP-000003

PATIENT
  Age: 36 Year

DRUGS (1)
  1. METHYLPREDNISOLONE. [Suspect]
     Active Substance: METHYLPREDNISOLONE
     Indication: NEUTROPHILIC DERMATOSIS
     Dosage: HIGH DOSE
     Route: 042

REACTIONS (2)
  - Bradycardia [Recovered/Resolved]
  - Drug effective for unapproved indication [Unknown]
